FAERS Safety Report 8952796 (Version 1)
Quarter: 2012Q4

REPORT INFORMATION
  Report Type: 
  Country: AU (occurrence: AU)
  Receive Date: 20121204
  Receipt Date: 20121204
  Transmission Date: 20130627
  Serious: Yes (Hospitalization)
  Sender: FDA-Public Use
  Company Number: AU-PURDUE-USA-2012-0096249

PATIENT
  Age: 60 Year
  Sex: Female

DRUGS (9)
  1. MS CONTIN TABLETS [Suspect]
     Indication: PAIN
     Dosage: 30 mg, bid
     Route: 048
     Dates: end: 201203
  2. TARGIN [Suspect]
     Indication: PRODUCT USED FOR UNKNOWN INDICATION
     Dosage: 40/20 mg , daily
     Route: 048
     Dates: start: 20120303, end: 20120303
  3. ANAMORPH [Suspect]
     Indication: PAIN
     Dosage: 120 mg, daily
     Route: 048
     Dates: end: 20120303
  4. PANADEINE                          /00116401/ [Suspect]
     Indication: PAIN
     Dosage: 2000/240mg daily
     Route: 048
     Dates: end: 20120303
  5. ALODORM [Concomitant]
     Indication: PRODUCT USED FOR UNKNOWN INDICATION
     Dosage: UNK
  6. ANTENEX [Concomitant]
     Indication: PRODUCT USED FOR UNKNOWN INDICATION
  7. NEXIUM                             /01479302/ [Concomitant]
     Indication: PRODUCT USED FOR UNKNOWN INDICATION
     Dosage: UNK
  8. PRISTIQ [Concomitant]
     Indication: PRODUCT USED FOR UNKNOWN INDICATION
     Dosage: UNK
  9. SEROQUEL [Concomitant]
     Indication: PRODUCT USED FOR UNKNOWN INDICATION
     Dosage: UNK

REACTIONS (4)
  - Circulatory collapse [Recovered/Resolved]
  - Hallucination [Recovered/Resolved]
  - Diarrhoea [Recovered/Resolved]
  - Asthenia [Recovered/Resolved]
